FAERS Safety Report 9111267 (Version 1)
Quarter: 2013Q1

REPORT INFORMATION
  Report Type: Spontaneous
  Country: US (occurrence: US)
  Receive Date: 20130219
  Receipt Date: 20130219
  Transmission Date: 20140127
  Serious: No
  Sender: FDA-Public Use
  Company Number: US-BRISTOL-MYERS SQUIBB COMPANY-16987224

PATIENT
  Age: 67 Year
  Sex: Female

DRUGS (14)
  1. ABATACEPT SUBQ INJECTION 125MG/ML [Suspect]
     Dosage: NO OF DOSES-4 PACK
     Route: 058
  2. CELEBREX [Concomitant]
     Dosage: CAP
  3. FOLIC ACID [Concomitant]
     Dosage: TAB
  4. PILOCARPINE [Concomitant]
     Dosage: TAB
  5. LANSOPRAZOLE [Concomitant]
     Dosage: CAP
  6. HYDROXYCHLOROQUINE [Concomitant]
     Dosage: TAB
  7. METHOTREXATE [Concomitant]
     Dosage: TAB
  8. DILTIAZEM HCL [Concomitant]
     Dosage: TAB
  9. ASPIRIN [Concomitant]
     Dosage: ENTERIC-COATED TAB
  10. CENTRUM SILVER [Concomitant]
     Dosage: TAB
  11. CITRACAL + D [Concomitant]
     Dosage: TAB
  12. OSTEO BI-FLEX [Concomitant]
  13. LOXEN [Concomitant]
     Dosage: FORMULATION-5-LOXEN ,TAB
  14. VITAMIN D [Concomitant]
     Dosage: 1DF=1000 UNITS NOS.?TAB

REACTIONS (1)
  - Aphthous stomatitis [Unknown]
